FAERS Safety Report 4880463-8 (Version None)
Quarter: 2006Q1

REPORT INFORMATION
  Report Type: 
  Country: None (occurrence: None)
  Receive Date: 20060113
  Receipt Date: 20051223
  Transmission Date: 20060701
  Serious: Yes (Hospitalization)
  Sender: FDA-Public Use
  Company Number: US-MERCK-0512USA03842

PATIENT
  Age: 75 Year
  Sex: Male

DRUGS (16)
  1. TRAMADOLOR [Concomitant]
     Route: 065
  2. VITAMIN D (UNSPECIFIED) [Concomitant]
     Route: 065
  3. INSULIN, BIPHASIC ISOPHANE [INJECTION] [Concomitant]
     Route: 058
  4. INSULIN, BIPHASIC ISOPHANE [INJECTION] [Concomitant]
     Route: 058
  5. ZOCOR [Suspect]
     Indication: DYSLIPIDAEMIA
     Route: 048
     Dates: start: 20010101, end: 20050213
  6. ASPIRIN [Concomitant]
     Route: 048
  7. COREG [Concomitant]
     Route: 048
  8. FERROUS SULFATE [Concomitant]
     Route: 048
  9. LASIX [Concomitant]
     Route: 048
  10. GABAPENTIN [Concomitant]
     Route: 065
  11. GLYBURIDE [Concomitant]
     Route: 065
  12. GLYBURIDE [Concomitant]
     Route: 065
  13. HYDRALAZINE [Concomitant]
     Route: 065
  14. ISDN [Concomitant]
     Route: 065
  15. NITROGLYCERIN [Concomitant]
     Route: 060
  16. OMEPRAZOLE [Concomitant]
     Route: 065

REACTIONS (19)
  - ABDOMINAL HERNIA [None]
  - ARTHRALGIA [None]
  - CARDIAC FAILURE CONGESTIVE [None]
  - CELLULITIS [None]
  - COGNITIVE DISORDER [None]
  - CORNEAL DYSTROPHY [None]
  - DIASTOLIC DYSFUNCTION [None]
  - FALL [None]
  - GOUT [None]
  - HYPOGLYCAEMIA [None]
  - KERATOCONJUNCTIVITIS SICCA [None]
  - MACULAR OEDEMA [None]
  - PARAESTHESIA [None]
  - POSTERIOR CAPSULE OPACIFICATION [None]
  - RENAL FAILURE ACUTE [None]
  - RHABDOMYOLYSIS [None]
  - SPEECH DISORDER [None]
  - UPPER RESPIRATORY TRACT INFECTION [None]
  - URINARY INCONTINENCE [None]
